FAERS Safety Report 25016888 (Version 2)
Quarter: 2025Q4

REPORT INFORMATION
  Report Type: Spontaneous
  Country: US (occurrence: None)
  Receive Date: 20250227
  Receipt Date: 20251118
  Transmission Date: 20260118
  Serious: No
  Sender: UCB
  Company Number: US-UCBSA-2024055430

PATIENT
  Age: 34 Year

DRUGS (4)
  1. LEVETIRACETAM [Suspect]
     Active Substance: LEVETIRACETAM
     Indication: Generalised tonic-clonic seizure
     Dosage: UNK
  2. LACOSAMIDE [Suspect]
     Active Substance: LACOSAMIDE
     Indication: Generalised tonic-clonic seizure
     Dosage: 100 MILLIGRAM, 2X/DAY (BID)
  3. LAMOTRIGINE [Suspect]
     Active Substance: LAMOTRIGINE
     Indication: Generalised tonic-clonic seizure
     Dosage: 300 MILLIGRAM, 2X/DAY (BID)
  4. ZONISAMIDE [Suspect]
     Active Substance: ZONISAMIDE
     Indication: Generalised tonic-clonic seizure
     Dosage: 400 MILLIGRAM, ONCE DAILY (QD)

REACTIONS (1)
  - Multiple-drug resistance [Unknown]
